FAERS Safety Report 24871799 (Version 1)
Quarter: 2025Q1

REPORT INFORMATION
  Report Type: Spontaneous
  Country: IT (occurrence: IT)
  Receive Date: 20250122
  Receipt Date: 20250122
  Transmission Date: 20250409
  Serious: Yes (Hospitalization, Other)
  Sender: HIKMA
  Company Number: IT-MINISAL02-989264

PATIENT

DRUGS (2)
  1. CLADRIBINE [Suspect]
     Active Substance: CLADRIBINE
     Indication: Multiple sclerosis relapse
     Dosage: 10 MILLIGRAM, QD
     Route: 065
     Dates: start: 20220215, end: 20220220
  2. METHYLPREDNISOLONE [Suspect]
     Active Substance: METHYLPREDNISOLONE
     Indication: Multiple sclerosis relapse
     Dosage: 1000 MILLIGRAM, QD
     Route: 065
     Dates: start: 20211215, end: 20211220

REACTIONS (2)
  - Drug-induced liver injury [Recovered/Resolved]
  - Immunoglobulin G4 related disease [Recovered/Resolved]

NARRATIVE: CASE EVENT DATE: 20220201
